FAERS Safety Report 10396743 (Version 2)
Quarter: 2014Q3

REPORT INFORMATION
  Report Type: Spontaneous
  Country: GB (occurrence: GB)
  Receive Date: 20140820
  Receipt Date: 20140827
  Transmission Date: 20150326
  Serious: Yes (Other)
  Sender: FDA-Public Use
  Company Number: PHHY2014GB099292

PATIENT
  Age: 46 Year
  Sex: Male

DRUGS (3)
  1. TYLEX (PARACETAMOL/CODEINE PHOSPHATE) [Suspect]
     Active Substance: ACETAMINOPHEN\CODEINE PHOSPHATE
     Indication: ARTHRALGIA
     Dosage: 4 DF
     Route: 048
     Dates: start: 20140710
  2. FELODIPINE. [Concomitant]
     Active Substance: FELODIPINE
  3. LORATADINE. [Suspect]
     Active Substance: LORATADINE
     Indication: SEASONAL ALLERGY
     Dosage: 50 MG (FIVE TABLETS).
     Route: 048
     Dates: start: 20140710

REACTIONS (2)
  - Impaired driving ability [None]
  - Epilepsy [Recovered/Resolved]

NARRATIVE: CASE EVENT DATE: 20140710
